FAERS Safety Report 5098711-0 (Version None)
Quarter: 2006Q3

REPORT INFORMATION
  Report Type: 
  Country: None (occurrence: None)
  Receive Date: 20060907
  Receipt Date: 20060504
  Transmission Date: 20061208
  Serious: Yes (Hospitalization)
  Sender: FDA-Public Use
  Company Number: FR-AMGEN-UK178594

PATIENT
  Age: 3 Year
  Sex: Female
  Weight: 13 kg

DRUGS (6)
  1. NEUPOGEN [Suspect]
     Indication: CHEMOTHERAPY
     Route: 058
     Dates: start: 20051230, end: 20060310
  2. ETOPOSIDE [Suspect]
     Route: 042
     Dates: start: 20051227, end: 20060226
  3. CISPLATIN [Suspect]
     Route: 042
     Dates: start: 20060106, end: 20060216
  4. CYCLOPHOSPHAMIDE [Suspect]
     Route: 042
     Dates: start: 20060116, end: 20060225
  5. VINCRISTINE [Suspect]
     Route: 042
     Dates: start: 20051227, end: 20060310
  6. CARBOPLATIN [Suspect]
     Route: 042
     Dates: start: 20051227, end: 20060206

REACTIONS (7)
  - ACUTE RESPIRATORY FAILURE [None]
  - BLOOD CREATININE INCREASED [None]
  - CYSTITIS HAEMORRHAGIC [None]
  - HAEMATURIA [None]
  - PROTEINURIA [None]
  - PULMONARY OEDEMA [None]
  - RENAL HYPERTENSION [None]
